FAERS Safety Report 7509927-5 (Version None)
Quarter: 2011Q2

REPORT INFORMATION
  Report Type: 
  Country: None (occurrence: None)
  Receive Date: 20110527
  Receipt Date: 20110525
  Transmission Date: 20111010
  Serious: Yes (Hospitalization)
  Sender: FDA-Public Use
  Company Number: CA-ABBOTT-11P-028-0728463-00

PATIENT
  Sex: Female
  Weight: 46.762 kg

DRUGS (2)
  1. HUMIRA [Suspect]
     Indication: CROHN'S DISEASE
     Route: 058
     Dates: start: 20080514
  2. DILAUDID [Concomitant]
     Indication: CROHN'S DISEASE
     Route: 048
     Dates: start: 20070101

REACTIONS (3)
  - ABDOMINAL DISTENSION [None]
  - CROHN'S DISEASE [None]
  - VOMITING [None]
